FAERS Safety Report 25026574 (Version 1)
Quarter: 2025Q1

REPORT INFORMATION
  Report Type: Spontaneous
  Country: US (occurrence: US)
  Receive Date: 20250301
  Receipt Date: 20250301
  Transmission Date: 20250408
  Serious: No
  Sender: IPSEN BIOPHARMACEUTICALS, INC.
  Company Number: US-IPSEN Group, Research and Development-2025-04832

PATIENT
  Age: 85 Year
  Sex: Female

DRUGS (7)
  1. DYSPORT [Suspect]
     Active Substance: ABOBOTULINUMTOXINA
     Indication: Torticollis
     Route: 030
     Dates: start: 20241203, end: 20241203
  2. FLUTICASONE [Concomitant]
     Active Substance: FLUTICASONE
  3. PANTOPRAZOLE [Concomitant]
     Active Substance: PANTOPRAZOLE
  4. PRAMIPEXOLE [Concomitant]
     Active Substance: PRAMIPEXOLE
  5. TOPIRAMATE [Concomitant]
     Active Substance: TOPIRAMATE
  6. VITAMIN B12 [Concomitant]
     Active Substance: CYANOCOBALAMIN
  7. VITAMIN D3 [Concomitant]
     Active Substance: CHOLECALCIFEROL

REACTIONS (3)
  - Muscle disorder [Unknown]
  - Musculoskeletal stiffness [Unknown]
  - Dysphagia [Unknown]

NARRATIVE: CASE EVENT DATE: 20241205
